FAERS Safety Report 10050797 (Version 1)
Quarter: 2014Q2

REPORT INFORMATION
  Report Type: Spontaneous
  Country: US (occurrence: US)
  Receive Date: 20140401
  Receipt Date: 20140401
  Transmission Date: 20141212
  Serious: No
  Sender: FDA-Public Use
  Company Number: US-ASTRAZENECA-2014SE00689

PATIENT
  Age: 46 Year
  Sex: Female
  Weight: 65.8 kg

DRUGS (11)
  1. NEXIUM [Suspect]
     Indication: GASTROOESOPHAGEAL REFLUX DISEASE
     Route: 048
  2. NEXIUM [Suspect]
     Indication: BARRETT^S OESOPHAGUS
     Route: 048
  3. NEXIUM [Suspect]
     Indication: GASTROOESOPHAGEAL REFLUX DISEASE
     Route: 048
  4. NEXIUM [Suspect]
     Indication: GASTROOESOPHAGEAL REFLUX DISEASE
     Dosage: 20 MG PURPLE PILL IN CAPSULE FORM PURCHASED DOMINICAN REPUBLIC DAILY
     Route: 048
     Dates: start: 2012
  5. NEXIUM [Suspect]
     Indication: BARRETT^S OESOPHAGUS
     Dosage: 20 MG PURPLE PILL IN CAPSULE FORM PURCHASED DOMINICAN REPUBLIC DAILY
     Route: 048
     Dates: start: 2012
  6. NEXIUM [Suspect]
     Indication: GASTROOESOPHAGEAL REFLUX DISEASE
     Dosage: 20 MG PURPLE PILL IN CAPSULE FORM PURCHASED DOMINICAN REPUBLIC DAILY
     Route: 048
     Dates: start: 2012
  7. NEXIUM [Suspect]
     Indication: GASTROOESOPHAGEAL REFLUX DISEASE
     Dosage: 20 MG FILM COATED, LIGHT, LIGHT PINK TABLETS FORM PURCHASED DOMINICAN REPUBLIC FROM SWEDEN DAILY
     Route: 048
     Dates: start: 201304
  8. NEXIUM [Suspect]
     Indication: BARRETT^S OESOPHAGUS
     Dosage: 20 MG FILM COATED, LIGHT, LIGHT PINK TABLETS FORM PURCHASED DOMINICAN REPUBLIC FROM SWEDEN DAILY
     Route: 048
     Dates: start: 201304
  9. NEXIUM [Suspect]
     Indication: GASTROOESOPHAGEAL REFLUX DISEASE
     Dosage: 20 MG FILM COATED, LIGHT, LIGHT PINK TABLETS FORM PURCHASED DOMINICAN REPUBLIC FROM SWEDEN DAILY
     Route: 048
     Dates: start: 201304
  10. PRILOSEC OTC [Suspect]
     Indication: GASTROOESOPHAGEAL REFLUX DISEASE
     Route: 048
     Dates: start: 2011
  11. PRILOSEC OTC [Suspect]
     Indication: BARRETT^S OESOPHAGUS
     Route: 048
     Dates: start: 2011

REACTIONS (4)
  - Gastrooesophageal reflux disease [Not Recovered/Not Resolved]
  - Nausea [Not Recovered/Not Resolved]
  - Drug ineffective [Not Recovered/Not Resolved]
  - Drug effect incomplete [Unknown]
